FAERS Safety Report 5936242-3 (Version None)
Quarter: 2008Q4

REPORT INFORMATION
  Report Type: 
  Country: None (occurrence: None)
  Receive Date: 20081030
  Receipt Date: 20080605
  Transmission Date: 20090506
  Serious: No
  Sender: FDA-Public Use
  Company Number: A0718643A

PATIENT
  Age: 66 Year
  Sex: Male

DRUGS (32)
  1. SEREVENT [Suspect]
     Indication: CHRONIC OBSTRUCTIVE PULMONARY DISEASE
     Route: 055
  2. REGULAR INSULIN [Concomitant]
  3. DIGOXIN [Concomitant]
  4. DOCUSATE [Concomitant]
  5. FLUNISOLIDE [Concomitant]
  6. FUROSEMIDE [Concomitant]
  7. LISINOPRIL [Concomitant]
  8. MAGNESIUM HYDROXIDE TAB [Concomitant]
  9. METFORMIN HYDROCHLORIDE [Concomitant]
  10. METOPROLOL TARTRATE [Concomitant]
  11. GUAIFENESIN [Concomitant]
  12. CADEXOMER-IODINE [Concomitant]
  13. SKIN DRESSING (UNSPECIFIED) [Concomitant]
  14. TERAZOSIN HCL [Concomitant]
  15. ALBUTEROL [Concomitant]
  16. ALBUTEROL SULFATE AND IPRATROPIUM BROMIDE [Concomitant]
  17. IPRATROPIUM BROMIDE [Concomitant]
  18. ALBUTEROL [Concomitant]
  19. FINASTERIDE [Concomitant]
  20. INSULATARD NPH HUMAN [Concomitant]
  21. CAPSAICIN [Concomitant]
  22. CHLOR-TRIMETON [Concomitant]
  23. RANITIDINE [Concomitant]
  24. SPIRONOLACTONE [Concomitant]
  25. MAGNESIUM OXIDE [Concomitant]
  26. OMEPRAZOLE [Concomitant]
  27. ZINC OXIDE OINTMENT [Concomitant]
  28. MICONAZOLE [Concomitant]
  29. GLUCOSAMINE [Concomitant]
  30. ASPIRIN [Concomitant]
  31. GARLIC OIL [Concomitant]
  32. SALINE NASAL SPRAY [Concomitant]

REACTIONS (3)
  - DRUG INEFFECTIVE [None]
  - DYSPNOEA [None]
  - PRODUCT QUALITY ISSUE [None]
